FAERS Safety Report 7285909-6 (Version None)
Quarter: 2011Q1

REPORT INFORMATION
  Report Type: 
  Country: None (occurrence: None)
  Receive Date: 20110210
  Receipt Date: 20110201
  Transmission Date: 20110831
  Serious: Yes (Life-Threatening, Other)
  Sender: FDA-Public Use
  Company Number: JP-AMGEN-JPNCT2010009366

PATIENT
  Age: 56 Year
  Sex: Male
  Weight: 70 kg

DRUGS (18)
  1. FLUOROURACIL [Concomitant]
     Route: 041
     Dates: start: 20100823, end: 20101018
  2. CALCIUM LEVOFOLINATE [Concomitant]
     Route: 041
     Dates: start: 20100823, end: 20101018
  3. ELPLAT [Concomitant]
     Indication: COLORECTAL CANCER
     Route: 041
     Dates: start: 20100809, end: 20100809
  4. AMOBAN [Concomitant]
     Dosage: UNK
     Route: 048
  5. MUCOSTA [Concomitant]
     Dosage: UNK
     Route: 048
  6. PANITUMUMAB [Suspect]
     Dosage: 3 MG/KG, Q2WK
     Route: 042
     Dates: start: 20101018, end: 20101101
  7. FLUOROURACIL [Concomitant]
     Route: 041
     Dates: start: 20100809, end: 20100809
  8. LOXONIN [Concomitant]
     Dosage: UNK
     Route: 048
  9. OXYCONTIN [Concomitant]
     Dosage: UNK
     Route: 048
  10. GABAPEN [Concomitant]
     Dosage: UNK
     Route: 048
  11. CORTICOSTEROIDS [Concomitant]
     Indication: PROPHYLAXIS
     Dosage: UNK
     Route: 065
  12. FLUOROURACIL [Concomitant]
     Indication: COLORECTAL CANCER
     Route: 040
     Dates: start: 20100809, end: 20100809
  13. ANTIHISTAMINES [Concomitant]
     Indication: PROPHYLAXIS
     Dosage: UNK
     Route: 065
  14. NOVAMIN [Concomitant]
     Dosage: UNK
     Route: 048
  15. FLUOROURACIL [Concomitant]
     Route: 040
     Dates: start: 20100823, end: 20101018
  16. PANITUMUMAB [Suspect]
     Indication: COLORECTAL CANCER
     Dosage: 6 MG/KG, Q2WK
     Route: 041
     Dates: start: 20100809, end: 20101004
  17. CONSTAN [Concomitant]
     Dosage: UNK
     Route: 048
  18. CALCIUM LEVOFOLINATE [Concomitant]
     Indication: COLORECTAL CANCER
     Route: 041
     Dates: start: 20100809, end: 20100809

REACTIONS (2)
  - PARONYCHIA [None]
  - INFUSION RELATED REACTION [None]
